FAERS Safety Report 6503138-8 (Version None)
Quarter: 2009Q4

REPORT INFORMATION
  Report Type: 
  Country: None (occurrence: None)
  Receive Date: 20091217
  Receipt Date: 20091029
  Transmission Date: 20100525
  Serious: No
  Sender: FDA-Public Use
  Company Number: US-KINGPHARMUSA00001-K200901370

PATIENT

DRUGS (1)
  1. SILVADENE [Suspect]
     Indication: THERMAL BURN
     Dosage: UNK
     Route: 061

REACTIONS (1)
  - APPLICATION SITE DISCOLOURATION [None]
